FAERS Safety Report 18523734 (Version 1)
Quarter: 2020Q4

REPORT INFORMATION
  Report Type: Report from Study
  Country: US (occurrence: US)
  Receive Date: 20201119
  Receipt Date: 20201119
  Transmission Date: 20210114
  Serious: Yes (Other)
  Sender: FDA-Public Use
  Company Number: US-BIOGEN-2020BI00945330

PATIENT
  Age: 31 Year
  Sex: Male

DRUGS (9)
  1. VITAMIN B12 [Concomitant]
     Active Substance: CYANOCOBALAMIN
     Indication: PRODUCT USED FOR UNKNOWN INDICATION
     Dosage: ODT, DISSOLVE ON TOP OF TONGUE
     Route: 065
  2. TECFIDERA [Suspect]
     Active Substance: DIMETHYL FUMARATE
     Dosage: MAINTENANCE DOSE
     Route: 048
     Dates: end: 2020
  3. TECFIDERA [Suspect]
     Active Substance: DIMETHYL FUMARATE
     Indication: MULTIPLE SCLEROSIS
     Dosage: STARTING DOSE
     Route: 048
     Dates: start: 20151209
  4. NORVASC [Concomitant]
     Active Substance: AMLODIPINE BESYLATE
     Indication: PRODUCT USED FOR UNKNOWN INDICATION
     Route: 048
  5. VITAMIN D3 [Concomitant]
     Active Substance: CHOLECALCIFEROL
     Indication: PRODUCT USED FOR UNKNOWN INDICATION
     Route: 048
  6. ST. JOHN^S WORT [Concomitant]
     Active Substance: ST. JOHN^S WORT
     Indication: PRODUCT USED FOR UNKNOWN INDICATION
     Route: 048
  7. LIORESAL [Concomitant]
     Active Substance: BACLOFEN
     Indication: PRODUCT USED FOR UNKNOWN INDICATION
     Route: 048
  8. COLACE [Concomitant]
     Active Substance: DOCUSATE SODIUM
     Indication: PRODUCT USED FOR UNKNOWN INDICATION
     Dosage: 1 CAP PO BID PRN FOR CONSTIPATION
     Route: 048
  9. TIMOPTIC [Concomitant]
     Active Substance: TIMOLOL MALEATE
     Indication: PRODUCT USED FOR UNKNOWN INDICATION
     Dosage: 1 GTT OU QD
     Route: 047

REACTIONS (12)
  - Lumbar vertebral fracture [Unknown]
  - Rib fracture [Unknown]
  - Road traffic accident [Recovered/Resolved]
  - Cervical vertebral fracture [Unknown]
  - Femur fracture [Unknown]
  - Skin laceration [Unknown]
  - Hand fracture [Unknown]
  - Pneumothorax traumatic [Unknown]
  - Skin injury [Unknown]
  - Haemothorax [Unknown]
  - Thoracic vertebral fracture [Unknown]
  - Fibula fracture [Unknown]

NARRATIVE: CASE EVENT DATE: 20170428
